FAERS Safety Report 10768966 (Version 1)
Quarter: 2015Q1

REPORT INFORMATION
  Report Type: Spontaneous
  Country: CL (occurrence: None)
  Receive Date: 20150204
  Receipt Date: 20150204
  Transmission Date: 20150721
  Serious: Yes (Hospitalization, Other)
  Sender: FDA-Public Use
  Company Number: CL-ZYDUS-006476

PATIENT
  Age: 65 Year
  Sex: Male

DRUGS (2)
  1. TELAPREVIR (TELAPREVIR) [Suspect]
     Active Substance: TELAPREVIR
     Indication: CHRONIC HEPATITIS C
     Dates: start: 20130315
  2. RIBAVIRIN (RIBAVIRIN) [Suspect]
     Active Substance: RIBAVIRIN
     Indication: CHRONIC HEPATITIS C
     Dates: start: 20130315

REACTIONS (8)
  - Respiratory tract infection [None]
  - Rash [None]
  - Anorectal discomfort [None]
  - Mycobacterium abscessus infection [None]
  - Anaemia [None]
  - Platelet count decreased [None]
  - Pruritus [None]
  - Neutrophil count decreased [None]
